FAERS Safety Report 4988946-7 (Version None)
Quarter: 2006Q2

REPORT INFORMATION
  Report Type: 
  Country: None (occurrence: None)
  Receive Date: 20060425
  Receipt Date: 20060417
  Transmission Date: 20061013
  Serious: Yes (Hospitalization)
  Sender: FDA-Public Use
  Company Number: 2006BI003939

PATIENT
  Age: 51 Year
  Sex: Female

DRUGS (10)
  1. AVONEX [Suspect]
     Indication: MULTIPLE SCLEROSIS
     Dosage: 30 UG; QW; IM
     Route: 030
     Dates: start: 19970101
  2. AVONEX [Suspect]
     Indication: MULTIPLE SCLEROSIS
     Dosage: 30 UG; QW; IM
     Route: 030
  3. PROZAC [Concomitant]
  4. AMANTIDINE [Concomitant]
  5. ZANAFLEX [Concomitant]
  6. ATENOLOL [Concomitant]
  7. NEXIUM [Concomitant]
  8. CARBAMAZEPINE [Concomitant]
  9. OXYBUTYNIN [Concomitant]
  10. BACLOFEN [Concomitant]

REACTIONS (2)
  - BACK DISORDER [None]
  - INTERVERTEBRAL DISC PROTRUSION [None]
